FAERS Safety Report 7247517-2 (Version None)
Quarter: 2011Q1

REPORT INFORMATION
  Report Type: 
  Country: None (occurrence: None)
  Receive Date: 20110127
  Receipt Date: 20101230
  Transmission Date: 20110831
  Serious: No
  Sender: FDA-Public Use
  Company Number: US-MYLANLABS-2011S1000273

PATIENT
  Age: 48 Year
  Sex: Female

DRUGS (7)
  1. TOPROL-XL [Concomitant]
     Indication: HYPERTENSION
  2. KLONOPIN [Concomitant]
  3. XANAX [Concomitant]
     Indication: ANXIETY
  4. DIVALPROEX SODIUM EXTENDED RELEASE [Suspect]
     Indication: BIPOLAR DISORDER
     Route: 048
     Dates: start: 20101119
  5. PRAMIPEXOLE DIHYDROCHLORIDE [Concomitant]
  6. DIVALPROEX SODIUM EXTENDED RELEASE [Suspect]
     Indication: TARDIVE DYSKINESIA
     Route: 048
     Dates: start: 20101119
  7. LUNESTA [Concomitant]

REACTIONS (1)
  - DRUG LEVEL BELOW THERAPEUTIC [None]
